FAERS Safety Report 22186622 (Version 1)
Quarter: 2023Q2

REPORT INFORMATION
  Report Type: Spontaneous
  Country: US (occurrence: None)
  Receive Date: 20230407
  Receipt Date: 20230407
  Transmission Date: 20230722
  Serious: No
  Sender: FDA-Public Use
  Company Number: None

PATIENT
  Age: 22 Year
  Sex: Female
  Weight: 69.75 kg

DRUGS (3)
  1. GAMMAKED [Suspect]
     Active Substance: HUMAN IMMUNOGLOBULIN G
     Indication: Chronic inflammatory demyelinating polyradiculoneuropathy
     Route: 042
  2. Diphenhydramine 25MG CAP [Concomitant]
  3. Acetaminophen 325MG TAB [Concomitant]

REACTIONS (4)
  - Headache [None]
  - Nausea [None]
  - Infusion related reaction [None]
  - Malaise [None]

NARRATIVE: CASE EVENT DATE: 20230403
